FAERS Safety Report 9752184 (Version 1)
Quarter: 2013Q4

REPORT INFORMATION
  Report Type: Spontaneous
  Country: US (occurrence: None)
  Receive Date: 20131211
  Receipt Date: 20131211
  Transmission Date: 20140711
  Serious: Yes (Other)
  Sender: FDA-Public Use
  Company Number: None

PATIENT
  Sex: 0

DRUGS (2)
  1. CONCERTA [Suspect]
     Indication: ATTENTION DEFICIT/HYPERACTIVITY DISORDER
     Dosage: QAM
     Route: 048
     Dates: start: 20130710, end: 20130720
  2. CONCERTA [Suspect]
     Indication: ATTENTION DEFICIT/HYPERACTIVITY DISORDER
     Dosage: QAM
     Route: 048
     Dates: start: 20131201, end: 20131208

REACTIONS (3)
  - Agitation [None]
  - Psychomotor hyperactivity [None]
  - Drug effect decreased [None]
